FAERS Safety Report 5089845-5 (Version None)
Quarter: 2006Q3

REPORT INFORMATION
  Report Type: 
  Country: None (occurrence: None)
  Receive Date: 20060828
  Receipt Date: 20060818
  Transmission Date: 20061208
  Serious: Yes (Other)
  Sender: FDA-Public Use
  Company Number: PHNR2006AU01063

PATIENT

DRUGS (1)
  1. ELIDEL [Suspect]

REACTIONS (1)
  - INTRAOCULAR PRESSURE INCREASED [None]
